FAERS Safety Report 4717253-2 (Version None)
Quarter: 2005Q3

REPORT INFORMATION
  Report Type: 
  Country: None (occurrence: None)
  Receive Date: 20050715
  Receipt Date: 20050704
  Transmission Date: 20060218
  Serious: Yes (Other)
  Sender: FDA-Public Use
  Company Number: 2005061576

PATIENT
  Age: 58 Year
  Sex: Male

DRUGS (3)
  1. BEXTRA [Suspect]
     Indication: SCROTAL DISORDER
     Dosage: 40 MG (40 MG, 1 IN 1 D), ORAL
     Route: 048
     Dates: start: 20041201, end: 20041201
  2. ANTIHYPERTENSIVES (ANTIHYPERTENSIVES) [Concomitant]
  3. ENALAPRIL (ENALAPRIL0 [Concomitant]

REACTIONS (6)
  - CONDITION AGGRAVATED [None]
  - FURUNCLE [None]
  - GENITAL INJURY [None]
  - HYPERTENSION [None]
  - MUSCULOSKELETAL STIFFNESS [None]
  - NECK PAIN [None]
